FAERS Safety Report 14708207 (Version 10)
Quarter: 2019Q2

REPORT INFORMATION
  Report Type: Report from Study
  Country: CA (occurrence: CA)
  Receive Date: 20180403
  Receipt Date: 20190607
  Transmission Date: 20190711
  Serious: Yes (Hospitalization, Other)
  Sender: FDA-Public Use
  Company Number: PHHY2017CA196684

PATIENT
  Age: 86 Year
  Sex: Female

DRUGS (7)
  1. TAFINLAR [Suspect]
     Active Substance: DABRAFENIB MESYLATE
     Dosage: 200 MG, (STRENGTH: 50 MG)
     Route: 048
     Dates: start: 20171227
  2. MEKINIST [Suspect]
     Active Substance: TRAMETINIB DIMETHYL SULFOXIDE
     Indication: NON-SMALL CELL LUNG CANCER
     Dosage: 2 MG, UNK
     Route: 048
     Dates: start: 20171227
  3. TAFINLAR [Suspect]
     Active Substance: DABRAFENIB MESYLATE
     Dosage: 300 MG (STRENGTH: 75 MG)
     Route: 048
  4. TAFINLAR [Suspect]
     Active Substance: DABRAFENIB MESYLATE
     Dosage: 200 MG, (STRENGTH: 50 MG)
     Route: 048
  5. TAFINLAR [Suspect]
     Active Substance: DABRAFENIB MESYLATE
     Indication: NON-SMALL CELL LUNG CANCER
     Dosage: 100 MG, UNK
     Route: 048
  6. TAFINLAR [Suspect]
     Active Substance: DABRAFENIB MESYLATE
     Dosage: 50 MG, QD (1 X 50 MG OF TAFINLAR ONCE PER DAY)
     Route: 048
  7. FRAGMIN [Concomitant]
     Active Substance: DALTEPARIN SODIUM
     Indication: PRODUCT USED FOR UNKNOWN INDICATION
     Route: 065

REACTIONS (19)
  - Cellulitis [Unknown]
  - Thrombosis [Unknown]
  - Sepsis [Unknown]
  - Gout [Unknown]
  - Bacterial test positive [Unknown]
  - Fatigue [Unknown]
  - Wrong product administered [Unknown]
  - Arthritis infective [Unknown]
  - Cholelithiasis [Unknown]
  - Rash [Unknown]
  - Rash macular [Unknown]
  - Breast ulceration [Unknown]
  - Pulmonary thrombosis [Unknown]
  - Pyrexia [Unknown]
  - Urinary tract infection [Unknown]
  - Contusion [Unknown]
  - Anxiety [Unknown]
  - Nasopharyngitis [Unknown]
  - Somnolence [Unknown]

NARRATIVE: CASE EVENT DATE: 20180327
